FAERS Safety Report 8536590-7 (Version None)
Quarter: 2012Q3

REPORT INFORMATION
  Report Type: 
  Country: None (occurrence: None)
  Receive Date: 20120725
  Receipt Date: 20120720
  Transmission Date: 20120928
  Serious: Yes (Hospitalization, Other)
  Sender: FDA-Public Use
  Company Number: US-AMGEN-USASP2012035088

PATIENT
  Sex: Female
  Weight: 70 kg

DRUGS (1)
  1. EPOGEN [Suspect]
     Indication: DIALYSIS
     Dosage: UNK
     Dates: start: 20111201

REACTIONS (13)
  - PULSE ABSENT [None]
  - HYPOTENSION [None]
  - NAUSEA [None]
  - FEELING ABNORMAL [None]
  - INCONTINENCE [None]
  - BLOOD GLUCOSE DECREASED [None]
  - MALAISE [None]
  - UNRESPONSIVE TO STIMULI [None]
  - DRUG HYPERSENSITIVITY [None]
  - PALLOR [None]
  - FEELING HOT [None]
  - HYPERHIDROSIS [None]
  - VOMITING [None]
